FAERS Safety Report 11456022 (Version 1)
Quarter: 2015Q3

REPORT INFORMATION
  Report Type: Spontaneous
  Country: US (occurrence: US)
  Receive Date: 20150903
  Receipt Date: 20150903
  Transmission Date: 20151125
  Serious: Yes (Death)
  Sender: FDA-Public Use
  Company Number: US-BAYER-2015-409434

PATIENT
  Age: 90 Year
  Sex: Female
  Weight: 52.15 kg

DRUGS (2)
  1. BAYER GENUINE ASPIRIN [Suspect]
     Active Substance: ASPIRIN
     Indication: ISCHAEMIC HEART DISEASE PROPHYLAXIS
     Dosage: 1 DF, QD
     Route: 048
     Dates: end: 1992
  2. MYLANTA [CALCIUM CARBONATE] [Concomitant]

REACTIONS (1)
  - Aortic aneurysm [Fatal]

NARRATIVE: CASE EVENT DATE: 1992
